FAERS Safety Report 24412460 (Version 1)
Quarter: 2024Q4

REPORT INFORMATION
  Report Type: Spontaneous
  Country: US (occurrence: None)
  Receive Date: 20241008
  Receipt Date: 20241008
  Transmission Date: 20250115
  Serious: Yes (Hospitalization)
  Sender: Public
  Company Number: None

PATIENT
  Age: 68 Year
  Sex: Female

DRUGS (1)
  1. COSENTYX [Suspect]
     Active Substance: SECUKINUMAB
     Indication: Psoriasis
     Dosage: OTHER FREQUENCY : ATWEEK4ANDEVERY4WEEKSTHEREAFTER ;?^1;^,:,^.^, AND EVERY4 WEEKS 1AND THEREAFTER????

REACTIONS (2)
  - Fall [None]
  - Lower limb fracture [None]
